FAERS Safety Report 4424970-0 (Version None)
Quarter: 2004Q3

REPORT INFORMATION
  Report Type: 
  Country: None (occurrence: None)
  Receive Date: 20040809
  Receipt Date: 20040727
  Transmission Date: 20050211
  Serious: Yes (Congenital Anomaly)
  Sender: FDA-Public Use
  Company Number: 04P-163-0252678-00

PATIENT
  Age: 1 Day
  Sex: Female

DRUGS (1)
  1. KALETRA [Suspect]

REACTIONS (7)
  - BODY DYSMORPHIC DISORDER [None]
  - CARDIAC MURMUR [None]
  - CONGENITAL HAIR DISORDER [None]
  - DRUG EXPOSURE DURING PREGNANCY [None]
  - FINGER DEFORMITY [None]
  - MICROTIA [None]
  - POLYDACTYLY [None]
